FAERS Safety Report 21668997 (Version 1)
Quarter: 2022Q4

REPORT INFORMATION
  Report Type: Spontaneous
  Country: RU (occurrence: None)
  Receive Date: 20221201
  Receipt Date: 20221201
  Transmission Date: 20230113
  Serious: Yes (Other)
  Sender: FDA-Public Use
  Company Number: 2022A390362

PATIENT

DRUGS (4)
  1. PULMICORT TURBUHALER [Suspect]
     Active Substance: BUDESONIDE
     Indication: Asthma
     Dosage: 250.0MG/ML EVERY 8 - 12 HOURS
     Route: 055
     Dates: start: 20221110
  2. PULMICORT TURBUHALER [Suspect]
     Active Substance: BUDESONIDE
     Indication: Hypersensitivity
     Dosage: 250.0MG/ML EVERY 8 - 12 HOURS
     Route: 055
     Dates: start: 20221110
  3. PULMICORT TURBUHALER [Suspect]
     Active Substance: BUDESONIDE
     Indication: Cough
     Dosage: 250.0MG/ML EVERY 8 - 12 HOURS
     Route: 055
     Dates: start: 20221110
  4. PULMICORT TURBUHALER [Suspect]
     Active Substance: BUDESONIDE
     Indication: Ill-defined disorder
     Dosage: 250.0MG/ML EVERY 8 - 12 HOURS
     Route: 055
     Dates: start: 20221110

REACTIONS (2)
  - Cough [Unknown]
  - Product contamination physical [Unknown]
